FAERS Safety Report 5017340-8 (Version None)
Quarter: 2006Q2

REPORT INFORMATION
  Report Type: 
  Country: None (occurrence: None)
  Receive Date: 20060414
  Receipt Date: 20060228
  Transmission Date: 20061013
  Serious: No
  Sender: FDA-Public Use
  Company Number: 2006SP000998

PATIENT
  Age: 66 Year
  Sex: Female
  Weight: 59.8748 kg

DRUGS (4)
  1. LUNESTA [Suspect]
     Indication: PAIN
     Dosage: 2 MG/ X1; ORAL
     Route: 048
     Dates: start: 20060225, end: 20060225
  2. PRILOSEC [Concomitant]
  3. ACTONEL [Concomitant]
  4. MYOCALCIUM [Concomitant]

REACTIONS (2)
  - SLUGGISHNESS [None]
  - STOMACH DISCOMFORT [None]
